FAERS Safety Report 10512956 (Version 1)
Quarter: 2014Q4

REPORT INFORMATION
  Report Type: Report from Study
  Country: US (occurrence: US)
  Receive Date: 20141013
  Receipt Date: 20141013
  Transmission Date: 20150528
  Serious: Yes (Hospitalization)
  Sender: FDA-Public Use
  Company Number: US-BIOGENIDEC-2014BI104524

PATIENT
  Age: 35 Year
  Sex: Female

DRUGS (1)
  1. TYSABRI [Suspect]
     Active Substance: NATALIZUMAB
     Indication: MULTIPLE SCLEROSIS
     Route: 042
     Dates: start: 20100706, end: 20140226

REACTIONS (5)
  - Mechanical ventilation [Recovered/Resolved]
  - Pancreatic disorder [Unknown]
  - Device related sepsis [Recovered/Resolved]
  - Fall [Recovered/Resolved]
  - Fractured coccyx [Unknown]

NARRATIVE: CASE EVENT DATE: 2014
